FAERS Safety Report 8478262-3 (Version None)
Quarter: 2012Q2

REPORT INFORMATION
  Report Type: 
  Country: None (occurrence: None)
  Receive Date: 20120629
  Receipt Date: 20120625
  Transmission Date: 20120825
  Serious: Yes (Hospitalization)
  Sender: FDA-Public Use
  Company Number: US-ROXANE LABORATORIES, INC.-2012-RO-00860RO

PATIENT
  Age: 53 Year
  Sex: Male

DRUGS (3)
  1. IPILIMUMAB [Suspect]
     Indication: MALIGNANT MELANOMA
     Route: 042
     Dates: start: 20110526, end: 20120112
  2. DEXAMETHASONE [Suspect]
  3. LEUKINE [Suspect]
     Indication: MALIGNANT MELANOMA
     Route: 058
     Dates: start: 20110526, end: 20120126

REACTIONS (3)
  - WOUND INFECTION [None]
  - GASTROINTESTINAL STOMA COMPLICATION [None]
  - WOUND DEHISCENCE [None]
